FAERS Safety Report 6068007-9 (Version None)
Quarter: 2009Q1

REPORT INFORMATION
  Report Type: 
  Country: None (occurrence: None)
  Receive Date: 20090206
  Receipt Date: 20090202
  Transmission Date: 20090719
  Serious: Yes (Hospitalization, Other)
  Sender: FDA-Public Use
  Company Number: DE-BRISTOL-MYERS SQUIBB COMPANY-14491294

PATIENT
  Age: 41 Year
  Sex: Female
  Weight: 75 kg

DRUGS (7)
  1. CYCLOPHOSPHAMIDE [Suspect]
     Indication: BREAST CANCER
     Dosage: INITIATED ON 13JUN08 D1,14
     Dates: start: 20080725, end: 20080725
  2. PACLITAXEL [Suspect]
     Indication: BREAST CANCER
     Dosage: D1,7,14 INITIATED ON 08AUG08
     Dates: start: 20081024, end: 20081024
  3. EPIRUBICIN [Suspect]
     Indication: BREAST CANCER
     Dosage: D1,14 INITIATED ON 13JUN08
     Dates: start: 20080725, end: 20080725
  4. CAPECITABINE [Suspect]
     Indication: BREAST CANCER
     Dosage: INITIATED ON 13AUG08;4000MG ONCE A DAY FOR 2WEEKS IN EVERY 3WEEKS
     Dates: start: 20081027, end: 20081027
  5. DEXAMETHASONE [Suspect]
     Dosage: GIVEN ON DAY1-3 AS 8MG AND 4MG.
     Dates: start: 20080613, end: 20081024
  6. CLEMASTINE FUMARATE [Concomitant]
  7. ONDANSETRON HYDROCHLORIDE [Concomitant]

REACTIONS (1)
  - DIABETES MELLITUS [None]
